FAERS Safety Report 5929223-7 (Version None)
Quarter: 2008Q4

REPORT INFORMATION
  Report Type: 
  Country: None (occurrence: None)
  Receive Date: 20081024
  Receipt Date: 20081023
  Transmission Date: 20090506
  Serious: Yes (Hospitalization)
  Sender: FDA-Public Use
  Company Number: ZA-BRISTOL-MYERS SQUIBB COMPANY-14372122

PATIENT
  Age: 28 Year
  Sex: Female

DRUGS (5)
  1. ATAZANAVIR SULFATE [Suspect]
     Indication: HIV INFECTION
     Dosage: INTERRUPTED ON 15OCT08
     Route: 048
     Dates: start: 20080626
  2. RITONAVIR [Suspect]
     Indication: HIV INFECTION
     Dosage: INTERRUPTED ON 15OCT08
     Route: 048
     Dates: start: 20080626
  3. COMBIVIR [Suspect]
     Indication: HIV INFECTION
     Dosage: INTERRUPTED ON 14OCT08;1 DOSAGE FORM = 150/300MG.
     Route: 048
     Dates: start: 20080626
  4. ZIDOVUDINE [Suspect]
     Indication: HIV INFECTION
     Dosage: STARTED AT 1845 HOURS AND STOPPED AT 2340 HRS ON 16-SEP-2008. TOTAL DOSE INFUSED 474MG.
     Route: 042
     Dates: start: 20080916, end: 20080916
  5. LAMIVUDINE [Suspect]
     Indication: HIV INFECTION
     Dosage: SINGLE ORAL DOSE OF 150 MG GIVEN DURING LABOUR
     Route: 048
     Dates: start: 20080916, end: 20080916

REACTIONS (2)
  - ANAEMIA [None]
  - PREGNANCY [None]
